FAERS Safety Report 12621492 (Version 1)
Quarter: 2016Q3

REPORT INFORMATION
  Report Type: Spontaneous
  Country: US (occurrence: None)
  Receive Date: 20160803
  Receipt Date: 20160803
  Transmission Date: 20161109
  Serious: No
  Sender: FDA-Public Use
  Company Number: None

PATIENT
  Age: 69 Year
  Sex: Male
  Weight: 101.3 kg

DRUGS (1)
  1. SULFAMETHOXAZOLE/TRIMETHOPRIM [Suspect]
     Active Substance: SULFAMETHOXAZOLE\TRIMETHOPRIM
     Indication: URINARY TRACT INFECTION
     Route: 048
     Dates: start: 20160610, end: 20160620

REACTIONS (7)
  - Abdominal pain [None]
  - Hyperhidrosis [None]
  - Vomiting [None]
  - Decreased appetite [None]
  - Chills [None]
  - Hepatic enzyme increased [None]
  - Headache [None]

NARRATIVE: CASE EVENT DATE: 20160620
